FAERS Safety Report 8488434-X (Version None)
Quarter: 2012Q3

REPORT INFORMATION
  Report Type: 
  Country: None (occurrence: None)
  Receive Date: 20120705
  Receipt Date: 20120622
  Transmission Date: 20120928
  Serious: Yes (Hospitalization)
  Sender: FDA-Public Use
  Company Number: NZ-AMGEN-NZLSP2012012500

PATIENT
  Age: 51 Year
  Sex: Female

DRUGS (5)
  1. AMILORIDE HYDROCHLORIDE [Concomitant]
     Indication: HYPERTENSION
     Dosage: 5 MG, 1X/DAY
     Route: 048
  2. NAPROXEN [Concomitant]
     Indication: ARTHRITIS
     Dosage: 500 MG, 2X/DAY
     Route: 048
  3. PAROXETINE [Concomitant]
     Indication: DEPRESSION
     Dosage: 20 MG, 1X/DAY
     Route: 048
  4. ENBREL [Suspect]
     Indication: PSORIASIS
     Dosage: 50 MG, TWICE WEEKLY
     Dates: start: 20111011, end: 20111102
  5. CILAZAPRIL/HYDROCHLOROTHIAZIDE [Concomitant]
     Indication: HYPERTENSION
     Dosage: 2.5 MG, 1X/DAY
     Route: 048

REACTIONS (7)
  - VOMITING [None]
  - CHILLS [None]
  - DIARRHOEA [None]
  - HYPOKALAEMIA [None]
  - MALAISE [None]
  - FLUSHING [None]
  - GASTROENTERITIS [None]
